FAERS Safety Report 6146742-1 (Version None)
Quarter: 2009Q2

REPORT INFORMATION
  Report Type: 
  Country: None (occurrence: None)
  Receive Date: 20090407
  Receipt Date: 20090326
  Transmission Date: 20091009
  Serious: Yes (Other)
  Sender: FDA-Public Use
  Company Number: US-JNJFOC-20090307275

PATIENT
  Age: 52 Year
  Sex: Male
  Weight: 90.27 kg

DRUGS (2)
  1. TYLENOL COLD HEAD CONGESTION DAYTIME COOL BURST [Suspect]
     Indication: INFLUENZA
     Route: 048
  2. TYLENOL COLD HEAD CONGESTION NIGHTTIME COOL BURST [Suspect]
     Indication: INFLUENZA
     Route: 048

REACTIONS (5)
  - DEAFNESS UNILATERAL [None]
  - EAR INFECTION [None]
  - HEADACHE [None]
  - PAIN [None]
  - RHINORRHOEA [None]
